FAERS Safety Report 19904053 (Version 1)
Quarter: 2021Q4

REPORT INFORMATION
  Report Type: Spontaneous
  Country: DE (occurrence: DE)
  Receive Date: 20211001
  Receipt Date: 20211001
  Transmission Date: 20220303
  Serious: Yes (Hospitalization)
  Sender: FDA-Public Use
  Company Number: DE-AMGEN-DEUSP2021114327

PATIENT
  Age: 87 Year
  Sex: Female

DRUGS (1)
  1. PROLIA [Suspect]
     Active Substance: DENOSUMAB
     Indication: Osteoporotic fracture
     Dosage: UNK, Q6MO
     Route: 058
     Dates: start: 20191113

REACTIONS (4)
  - Wound [Unknown]
  - Fall [Unknown]
  - Haematoma [Unknown]
  - Contusion [Unknown]

NARRATIVE: CASE EVENT DATE: 20210609
